FAERS Safety Report 16379903 (Version 4)
Quarter: 2019Q3

REPORT INFORMATION
  Report Type: Report from Study
  Country: CA (occurrence: CA)
  Receive Date: 20190531
  Receipt Date: 20190814
  Transmission Date: 20191004
  Serious: Yes (Other)
  Sender: FDA-Public Use
  Company Number: CA-NALPROPION PHARMACEUTICALS INC.-2019-007526

PATIENT

DRUGS (8)
  1. BASAL INSULIN [Concomitant]
     Active Substance: INSULIN HUMAN
     Indication: DIABETES MELLITUS
     Dosage: DAILY, 30 UNITS
     Route: 058
  2. BASAL INSULIN [Concomitant]
     Active Substance: INSULIN HUMAN
     Dosage: 25 UNITS,QHS (EVERY BEDTIME)
     Route: 058
  3. BASAL INSULIN [Concomitant]
     Active Substance: INSULIN HUMAN
     Dosage: INSULIN DOSAGE DECREASED
     Route: 058
  4. CONTRAVE [Suspect]
     Active Substance: BUPROPION HYDROCHLORIDE\NALTREXONE HYDROCHLORIDE
     Dosage: 1 TAB Q AM, 1 TAB Q PM (1 DOSAGE FORMS,2 IN 1 D)
     Route: 048
     Dates: start: 20190331, end: 20190406
  5. CONTRAVE [Suspect]
     Active Substance: BUPROPION HYDROCHLORIDE\NALTREXONE HYDROCHLORIDE
     Dosage: 2 TAB Q AM, 1 TAB Q PM (2 IN 1 D)
     Route: 048
     Dates: start: 20190407, end: 20190413
  6. CONTRAVE [Suspect]
     Active Substance: BUPROPION HYDROCHLORIDE\NALTREXONE HYDROCHLORIDE
     Indication: WEIGHT CONTROL
     Dosage: 1 TAB Q AM (1 DOSAGE FORMS,1 IN 1 D)
     Route: 048
     Dates: start: 20190324, end: 20190330
  7. CONTRAVE [Suspect]
     Active Substance: BUPROPION HYDROCHLORIDE\NALTREXONE HYDROCHLORIDE
     Dosage: 2 TAB Q AM, 2 TAB Q PM (2 DOSAGE FORMS,2 IN 1 D)
     Route: 048
     Dates: start: 20190414
  8. TESTOSTERONE. [Concomitant]
     Active Substance: TESTOSTERONE
     Indication: BLOOD TESTOSTERONE FREE DECREASED
     Dosage: Q MONTHLY
     Route: 050

REACTIONS (13)
  - Unevaluable event [Unknown]
  - Asthenia [Not Recovered/Not Resolved]
  - Muscle twitching [Not Recovered/Not Resolved]
  - Bladder disorder [Unknown]
  - Nausea [Not Recovered/Not Resolved]
  - Vomiting [Unknown]
  - Gait disturbance [Unknown]
  - Constipation [Not Recovered/Not Resolved]
  - Blood glucose decreased [Recovered/Resolved]
  - Fatigue [Unknown]
  - Blood pressure increased [Unknown]
  - Sleep disorder [Recovered/Resolved]
  - Dizziness [Unknown]

NARRATIVE: CASE EVENT DATE: 2019
